FAERS Safety Report 8032426-1 (Version None)
Quarter: 2012Q1

REPORT INFORMATION
  Report Type: 
  Country: None (occurrence: None)
  Receive Date: 20120110
  Receipt Date: 20120104
  Transmission Date: 20120608
  Serious: Yes (Hospitalization)
  Sender: FDA-Public Use
  Company Number: SE-JNJFOC-20120100976

PATIENT
  Age: 38 Year
  Sex: Male

DRUGS (2)
  1. REMICADE [Suspect]
     Indication: PSORIATIC ARTHROPATHY
     Route: 042
     Dates: start: 20110929, end: 20111215
  2. METHOTREXATE [Concomitant]
     Route: 065
     Dates: start: 20030902

REACTIONS (4)
  - ARRHYTHMIA [None]
  - HYPERTENSION [None]
  - PHARYNGEAL OEDEMA [None]
  - INFUSION RELATED REACTION [None]
